FAERS Safety Report 12666315 (Version 2)
Quarter: 2017Q1

REPORT INFORMATION
  Report Type: Spontaneous
  Country: US (occurrence: US)
  Receive Date: 20160818
  Receipt Date: 20170102
  Transmission Date: 20170428
  Serious: No
  Sender: FDA-Public Use
  Company Number: US-JAZZ-2016-US-005744

PATIENT
  Sex: Female

DRUGS (40)
  1. GABAPENTIN. [Suspect]
     Active Substance: GABAPENTIN
     Indication: PRODUCT USED FOR UNKNOWN INDICATION
  2. PROGESTERONE. [Concomitant]
     Active Substance: PROGESTERONE
  3. KLOR-CON [Concomitant]
     Active Substance: POTASSIUM CHLORIDE
  4. FISH OIL [Concomitant]
     Active Substance: FISH OIL
  5. DIPHENHYDRAMINE HCL [Concomitant]
     Active Substance: DIPHENHYDRAMINE HYDROCHLORIDE
  6. PROBIOTIC [Concomitant]
     Active Substance: PROBIOTICS NOS
  7. ARMOUR THYROID [Concomitant]
     Active Substance: THYROID, PORCINE
  8. XYREM [Suspect]
     Active Substance: SODIUM OXYBATE
     Dosage: 2.5 G, BID
     Route: 048
     Dates: start: 201508, end: 201510
  9. GARLIC. [Concomitant]
     Active Substance: GARLIC
  10. MULTIVITAMINS [Concomitant]
     Active Substance: VITAMINS
  11. TOPIRAMATE. [Concomitant]
     Active Substance: TOPIRAMATE
  12. EXCEDRIN MIGRAINE [Concomitant]
     Active Substance: ACETAMINOPHEN\ASPIRIN\CAFFEINE
  13. CYCLOBENZAPRINE [Concomitant]
     Active Substance: CYCLOBENZAPRINE
  14. IMMUNOCAL [Concomitant]
  15. TEMAZEPAM. [Concomitant]
     Active Substance: TEMAZEPAM
  16. SKELAXIN [Suspect]
     Active Substance: METAXALONE
     Indication: PRODUCT USED FOR UNKNOWN INDICATION
     Dosage: UNK
     Dates: start: 20150930
  17. NUVIGIL [Concomitant]
     Active Substance: ARMODAFINIL
  18. TESSALON [Concomitant]
     Active Substance: BENZONATATE
  19. VITAMIN D2 [Concomitant]
     Active Substance: ERGOCALCIFEROL
  20. XYREM [Suspect]
     Active Substance: SODIUM OXYBATE
     Indication: SOMNOLENCE
     Dosage: 1.5 G, BID
     Route: 048
     Dates: start: 201506, end: 201508
  21. ZETONNA [Concomitant]
     Active Substance: CICLESONIDE
  22. XYREM [Suspect]
     Active Substance: SODIUM OXYBATE
     Dosage: 4 G, BID
     Route: 048
     Dates: start: 201510
  23. TESTOSTERONE. [Concomitant]
     Active Substance: TESTOSTERONE
  24. CYTOMEL [Concomitant]
     Active Substance: LIOTHYRONINE SODIUM
  25. ALEVE [Concomitant]
     Active Substance: NAPROXEN SODIUM
  26. METAXALONE. [Concomitant]
     Active Substance: METAXALONE
  27. TOBRAMYCIN. [Concomitant]
     Active Substance: TOBRAMYCIN
  28. ECHINACEA [Concomitant]
     Active Substance: ECHINACEA, UNSPECIFIED
  29. IMMUNE BOOST [Concomitant]
     Active Substance: DIETARY SUPPLEMENT
  30. SYNTHROID [Concomitant]
     Active Substance: LEVOTHYROXINE SODIUM
  31. VITAMIN C [Concomitant]
     Active Substance: ASCORBIC ACID
  32. OMEPRAZOLE. [Concomitant]
     Active Substance: OMEPRAZOLE
  33. AMOXICILLIN. [Concomitant]
     Active Substance: AMOXICILLIN
  34. VITAMIN B12 [Concomitant]
     Active Substance: CYANOCOBALAMIN
  35. BIOTIN [Concomitant]
     Active Substance: BIOTIN
  36. XOPENEX HFA [Concomitant]
     Active Substance: LEVALBUTEROL TARTRATE
  37. LIOTHYRONINE SODIUM. [Concomitant]
     Active Substance: LIOTHYRONINE SODIUM
  38. LUNESTA [Concomitant]
     Active Substance: ESZOPICLONE
  39. REMERON [Concomitant]
     Active Substance: MIRTAZAPINE
  40. ZYRTEC [Concomitant]
     Active Substance: CETIRIZINE HYDROCHLORIDE

REACTIONS (5)
  - Hypersomnia [Unknown]
  - Wrong technique in product usage process [Unknown]
  - Drug ineffective [Unknown]
  - Vitamin D decreased [Unknown]
  - Fibromyalgia [Recovering/Resolving]
